FAERS Safety Report 9302322 (Version 1)
Quarter: 2013Q2

REPORT INFORMATION
  Report Type: Spontaneous
  Country: US (occurrence: US)
  Receive Date: 20130522
  Receipt Date: 20130522
  Transmission Date: 20140414
  Serious: No
  Sender: FDA-Public Use
  Company Number: US-009507513-1305USA009717

PATIENT
  Age: 76 Year
  Sex: Female

DRUGS (4)
  1. NASONEX [Suspect]
     Indication: SINUS DISORDER
     Dosage: ONE SPRAY IN EACH NOSTRIL ONCE A DAY
     Route: 045
     Dates: start: 2008
  2. SYNTHROID [Concomitant]
  3. ATENOLOL [Concomitant]
  4. GEMFIBROZIL [Concomitant]

REACTIONS (7)
  - Sinus disorder [Recovered/Resolved]
  - Eye pain [Recovered/Resolved]
  - Rhinalgia [Recovered/Resolved]
  - Nasal discomfort [Recovered/Resolved]
  - Swelling face [Recovered/Resolved]
  - Product quality issue [Unknown]
  - Exposure via direct contact [Unknown]
